FAERS Safety Report 15088804 (Version 7)
Quarter: 2020Q3

REPORT INFORMATION
  Report Type: Spontaneous
  Country: US (occurrence: US)
  Receive Date: 20180629
  Receipt Date: 20200819
  Transmission Date: 20201102
  Serious: No
  Sender: FDA-Public Use
  Company Number: US-PFIZER INC-2018226938

PATIENT
  Age: 71 Year
  Sex: Female

DRUGS (1)
  1. XELJANZ XR [Suspect]
     Active Substance: TOFACITINIB CITRATE
     Dosage: 11 MG, UNK

REACTIONS (6)
  - Swelling [Unknown]
  - Amnesia [Unknown]
  - Sensitivity to weather change [Unknown]
  - Road traffic accident [Unknown]
  - Arthralgia [Unknown]
  - Pain [Unknown]
